FAERS Safety Report 5260767-X (Version None)
Quarter: 2007Q1

REPORT INFORMATION
  Report Type: 
  Country: None (occurrence: None)
  Receive Date: 20070309
  Receipt Date: 20070228
  Transmission Date: 20070707
  Serious: Yes (Hospitalization)
  Sender: FDA-Public Use
  Company Number: US-MERCK-0703USA00060

PATIENT
  Age: 76 Year
  Sex: Male

DRUGS (1)
  1. FOSAMAX [Suspect]
     Indication: MICTURITION DISORDER
     Route: 048
     Dates: start: 20061030

REACTIONS (3)
  - HYPOTENSION [None]
  - LOSS OF CONSCIOUSNESS [None]
  - OFF LABEL USE [None]
